FAERS Safety Report 6910808-6 (Version None)
Quarter: 2010Q3

REPORT INFORMATION
  Report Type: 
  Country: None (occurrence: None)
  Receive Date: 20100716
  Receipt Date: 20091207
  Transmission Date: 20110219
  Serious: Yes (Other)
  Sender: FDA-Public Use
  Company Number: 2009307102

PATIENT
  Age: 49 Year
  Sex: Female
  Weight: 99.8 kg

DRUGS (3)
  1. CELEBREX [Suspect]
     Indication: ARTHRITIS
     Dosage: 200 MG, ALTERNATE DAY
     Dates: start: 20091130, end: 20091205
  2. BENAZEPRIL HYDROCHLORIDE [Concomitant]
  3. HYDROCHLOROTHIAZIDE [Concomitant]

REACTIONS (3)
  - ABDOMINAL PAIN [None]
  - DIARRHOEA HAEMORRHAGIC [None]
  - GASTROINTESTINAL HAEMORRHAGE [None]
